FAERS Safety Report 5090602-4 (Version None)
Quarter: 2006Q3

REPORT INFORMATION
  Report Type: 
  Country: None (occurrence: None)
  Receive Date: 20060828
  Receipt Date: 20060619
  Transmission Date: 20061208
  Serious: No
  Sender: FDA-Public Use
  Company Number: US-GLAXOSMITHKLINE-A0609589A

PATIENT
  Age: 36 Year
  Sex: Female

DRUGS (2)
  1. WELLBUTRIN XL [Suspect]
     Indication: POSTPARTUM DEPRESSION
     Dosage: 300MG PER DAY
     Route: 048
     Dates: start: 20060101
  2. NO CONCURRENT MEDICATION [Concomitant]

REACTIONS (3)
  - ACCIDENTAL OVERDOSE [None]
  - DRUG INEFFECTIVE [None]
  - PHARMACEUTICAL PRODUCT COMPLAINT [None]
